FAERS Safety Report 6439985-0 (Version None)
Quarter: 2009Q4

REPORT INFORMATION
  Report Type: 
  Country: None (occurrence: None)
  Receive Date: 20091112
  Receipt Date: 20091112
  Transmission Date: 20100525
  Serious: Yes (Hospitalization)
  Sender: FDA-Public Use
  Company Number: None

PATIENT
  Sex: Female
  Weight: 59.7387 kg

DRUGS (11)
  1. TAXOTERE [Suspect]
     Indication: BREAST CANCER
     Dosage: 75MG/M2 -130MG- Q 3 WEEKS IV
     Route: 042
     Dates: start: 20090528, end: 20090930
  2. CYCLOPHOSPHAMIDE [Concomitant]
  3. LEVAQUIN [Concomitant]
  4. LIDOCAINE [Concomitant]
  5. PERCOCET [Concomitant]
  6. NEULASTA [Concomitant]
  7. MIRALAX [Concomitant]
  8. VICODIN [Concomitant]
  9. NICODERM [Concomitant]
  10. PROZAC [Concomitant]
  11. ZOCOR [Concomitant]

REACTIONS (1)
  - INTERSTITIAL LUNG DISEASE [None]
